FAERS Safety Report 5024947-0 (Version None)
Quarter: 2006Q2

REPORT INFORMATION
  Report Type: 
  Country: None (occurrence: None)
  Receive Date: 20060607
  Receipt Date: 20060524
  Transmission Date: 20061013
  Serious: Yes (Hospitalization)
  Sender: FDA-Public Use
  Company Number: GXKR2006JP03041

PATIENT
  Age: 61 Year
  Sex: Female
  Weight: 54 kg

DRUGS (5)
  1. RIFAMPICIN [Suspect]
     Indication: TUBERCULOSIS
     Dates: start: 20040401
  2. PYRAZINAMIDE [Suspect]
     Indication: TUBERCULOSIS
     Dates: start: 20040501
  3. ETHAMBUTOL (NGX) (ETHAMBUTOL) [Suspect]
     Indication: TUBERCULOSIS
     Dates: start: 20040401
  4. ISONIAZID [Suspect]
     Indication: TUBERCULOSIS
     Dates: start: 20040501
  5. STREPTOMYCIN [Concomitant]

REACTIONS (6)
  - ALANINE AMINOTRANSFERASE INCREASED [None]
  - ASPARTATE AMINOTRANSFERASE INCREASED [None]
  - BLOOD PRESSURE INCREASED [None]
  - BONE MARROW FAILURE [None]
  - HEPATIC FUNCTION ABNORMAL [None]
  - WHITE BLOOD CELL COUNT DECREASED [None]
